FAERS Safety Report 24047120 (Version 1)
Quarter: 2024Q3

REPORT INFORMATION
  Report Type: Spontaneous
  Country: US (occurrence: None)
  Receive Date: 20240702
  Receipt Date: 20240702
  Transmission Date: 20241017
  Serious: Yes (unspecified)
  Sender: Public
  Company Number: None

PATIENT
  Age: 89 Year
  Sex: Female
  Weight: 50.4 kg

DRUGS (8)
  1. FARXIGA [Suspect]
     Active Substance: DAPAGLIFLOZIN PROPANEDIOL
     Indication: Diabetes mellitus
     Dosage: OTHER QUANTITY : 30 TABLET(S);?
     Route: 048
     Dates: start: 20240512, end: 20240521
  2. ENALAPRIL [Concomitant]
     Active Substance: ENALAPRIL
  3. ALLOPURINOL [Concomitant]
  4. GLUCOPHAGE [Concomitant]
  5. ALPRAZOLAM [Concomitant]
     Active Substance: ALPRAZOLAM
  6. TYLENOL [Concomitant]
     Active Substance: ACETAMINOPHEN
  7. FISH OIL [Concomitant]
     Active Substance: FISH OIL
  8. ZYRTEC [Concomitant]
     Active Substance: CETIRIZINE HYDROCHLORIDE

REACTIONS (1)
  - Urinary retention [None]

NARRATIVE: CASE EVENT DATE: 20240517
